FAERS Safety Report 15613781 (Version 5)
Quarter: 2019Q3

REPORT INFORMATION
  Report Type: Spontaneous
  Country: CA (occurrence: CA)
  Receive Date: 20181113
  Receipt Date: 20190730
  Transmission Date: 20191004
  Serious: Yes (Other)
  Sender: FDA-Public Use
  Company Number: CA-PFIZER INC-2018403923

PATIENT
  Age: 74 Year
  Sex: Female

DRUGS (3)
  1. XELJANZ [Suspect]
     Active Substance: TOFACITINIB CITRATE
     Indication: RHEUMATOID ARTHRITIS
     Dosage: 5 MG, 2X/DAY
     Route: 048
     Dates: start: 20180917, end: 20180929
  2. XELJANZ [Suspect]
     Active Substance: TOFACITINIB CITRATE
     Dosage: 5 MG, 2X/DAY
     Route: 048
     Dates: start: 20190224, end: 2019
  3. COUMADIN [Concomitant]
     Active Substance: WARFARIN SODIUM
     Dosage: UNK

REACTIONS (16)
  - Malaise [Not Recovered/Not Resolved]
  - Iron deficiency [Unknown]
  - Corneal disorder [Recovering/Resolving]
  - Diarrhoea [Not Recovered/Not Resolved]
  - Pyrexia [Unknown]
  - Asthma [Not Recovered/Not Resolved]
  - Blood pressure fluctuation [Unknown]
  - Eye infection [Recovering/Resolving]
  - Anorectal discomfort [Unknown]
  - Eye pain [Recovering/Resolving]
  - Bronchitis [Not Recovered/Not Resolved]
  - Oropharyngeal pain [Unknown]
  - Pulmonary pain [Unknown]
  - Clostridium difficile infection [Recovered/Resolved]
  - Ear pain [Unknown]
  - Influenza [Unknown]

NARRATIVE: CASE EVENT DATE: 2018
